FAERS Safety Report 6242738-X (Version None)
Quarter: 2009Q2

REPORT INFORMATION
  Report Type: 
  Country: None (occurrence: None)
  Receive Date: 20090624
  Receipt Date: 20090616
  Transmission Date: 20091009
  Serious: Yes (Hospitalization)
  Sender: FDA-Public Use
  Company Number: FR-B.I. PHARMACEUTICALS,INC./RIDGEFIELD-2009-FF-00431FF

PATIENT
  Sex: Male

DRUGS (16)
  1. ATROVENT [Suspect]
     Route: 055
     Dates: start: 20090429
  2. PLAVIX [Concomitant]
     Dosage: 75 MG
     Route: 048
     Dates: start: 20090429, end: 20090529
  3. KARDEGIC [Concomitant]
     Dosage: 160 MG
     Route: 048
     Dates: start: 20090502
  4. AMIODARONE [Concomitant]
     Route: 048
     Dates: start: 20090430, end: 20090511
  5. PARACETAMOL [Concomitant]
     Route: 048
  6. LANTUS [Concomitant]
     Route: 058
     Dates: start: 20090429
  7. BRICANYL [Concomitant]
     Route: 055
     Dates: start: 20090429
  8. FUROSEMIDE [Concomitant]
     Dates: start: 20090430, end: 20090430
  9. BUMEX [Concomitant]
  10. DOBUTAMINE HCL [Concomitant]
  11. NORADRENALINE [Concomitant]
  12. NEXIUM [Concomitant]
  13. TAHOR [Concomitant]
  14. ACUPAN [Concomitant]
  15. HEPARIN [Concomitant]
  16. CALCIPARINE [Concomitant]

REACTIONS (1)
  - EOSINOPHILIA [None]
